FAERS Safety Report 16979177 (Version 2)
Quarter: 2019Q4

REPORT INFORMATION
  Report Type: Spontaneous
  Country: US (occurrence: US)
  Receive Date: 20191031
  Receipt Date: 20191105
  Transmission Date: 20200122
  Serious: No
  Sender: FDA-Public Use
  Company Number: US-PFIZER INC-2019468132

PATIENT
  Age: 68 Year
  Sex: Male
  Weight: 81.65 kg

DRUGS (3)
  1. DILANTIN [Suspect]
     Active Substance: PHENYTOIN
     Dosage: 1 DF, 2X/DAY (ONE IN THE MORNING, AND ONE IN THE EVENING)
  2. DILANTIN [Suspect]
     Active Substance: PHENYTOIN
     Dosage: 3 DF, 2X/DAY (ALTERNATE; ONE IN THE MORNING, 2 IN THE EVENING)
  3. DILANTIN [Suspect]
     Active Substance: PHENYTOIN
     Indication: SEIZURE
     Dosage: 200 MG, 2X/DAY (TWO IN THE MORNING AND TWO IN THE EVENING)
     Route: 048

REACTIONS (6)
  - Gingival hypertrophy [Unknown]
  - Weight decreased [Not Recovered/Not Resolved]
  - Malaise [Unknown]
  - Gait disturbance [Not Recovered/Not Resolved]
  - Diarrhoea [Unknown]
  - Musculoskeletal disorder [Not Recovered/Not Resolved]
